FAERS Safety Report 7177263-5 (Version None)
Quarter: 2010Q4

REPORT INFORMATION
  Report Type: 
  Country: None (occurrence: None)
  Receive Date: 20101216
  Receipt Date: 20101216
  Transmission Date: 20110411
  Serious: Yes (Hospitalization)
  Sender: FDA-Public Use
  Company Number: None

PATIENT
  Age: 87 Year
  Sex: Male
  Weight: 86.1834 kg

DRUGS (2)
  1. IBRITUMOMAB TIUXETAN INDIUM-111 ZEVALIN [Suspect]
     Indication: LYMPHOMA
     Dosage: 5 MCI ONCE IV DRIP
     Route: 041
     Dates: start: 20070911, end: 20070911
  2. IBRITUMOMAB TIUXETAN YTTRIUM-90 ZEVALIN [Suspect]
     Dosage: 0.3 MCL/KG ONCE IV DRIP
     Route: 041
     Dates: start: 20070918, end: 20070918

REACTIONS (5)
  - ACUTE MYELOID LEUKAEMIA [None]
  - ANAEMIA [None]
  - MARROW HYPERPLASIA [None]
  - MYELODYSPLASTIC SYNDROME [None]
  - PNEUMONIA [None]
